FAERS Safety Report 14174742 (Version 1)
Quarter: 2017Q4

REPORT INFORMATION
  Report Type: Spontaneous
  Country: FI (occurrence: FI)
  Receive Date: 20171109
  Receipt Date: 20171109
  Transmission Date: 20180321
  Serious: Yes (Other)
  Sender: FDA-Public Use
  Company Number: FI-PFIZER INC-2017478448

PATIENT
  Age: 67 Year
  Sex: Female

DRUGS (3)
  1. PERINDOPRIL [Concomitant]
     Active Substance: PERINDOPRIL
     Indication: BLOOD PRESSURE MEASUREMENT
     Dosage: 8 MG, DAILY
     Route: 048
     Dates: start: 2012
  2. CALCICHEW D3 FORTE [Concomitant]
     Active Substance: CALCIUM\CHOLECALCIFEROL
     Indication: OSTEOPOROSIS
     Dosage: 2 DF, DAILY
     Route: 048
     Dates: start: 2012
  3. CHAMPIX [Suspect]
     Active Substance: VARENICLINE TARTRATE
     Indication: SMOKING CESSATION THERAPY
     Dosage: 2 MG, DAILY
     Route: 048
     Dates: start: 20170822

REACTIONS (11)
  - Chest discomfort [Unknown]
  - Nausea [Unknown]
  - Chest pain [Unknown]
  - Asthenia [Unknown]
  - Hot flush [Unknown]
  - Dizziness [Unknown]
  - Blood pressure increased [Unknown]
  - Heart rate increased [Unknown]
  - Mood altered [Unknown]
  - Dry mouth [Unknown]
  - Abnormal dreams [Unknown]

NARRATIVE: CASE EVENT DATE: 201709
